FAERS Safety Report 8025896-6 (Version None)
Quarter: 2012Q1

REPORT INFORMATION
  Report Type: 
  Country: None (occurrence: None)
  Receive Date: 20120105
  Receipt Date: 20110415
  Transmission Date: 20120608
  Serious: No
  Sender: FDA-Public Use
  Company Number: US-ABBOTT-11P-163-0720508-00

PATIENT
  Sex: Female
  Weight: 46.762 kg

DRUGS (4)
  1. AMLODIPINE [Concomitant]
     Indication: BLOOD PRESSURE
  2. SIMVASTATIN [Concomitant]
     Indication: PRODUCT USED FOR UNKNOWN INDICATION
  3. FOSAMAX [Concomitant]
     Indication: BONE DISORDER
  4. SYNTHROID [Suspect]
     Indication: PRODUCT USED FOR UNKNOWN INDICATION
     Dates: start: 19930101

REACTIONS (3)
  - RASH [None]
  - URTICARIA [None]
  - PRURITUS [None]
